FAERS Safety Report 8811066 (Version 1)
Quarter: 2012Q4

REPORT INFORMATION
  Report Type: 
  Country: CA (occurrence: CA)
  Receive Date: 20120927
  Receipt Date: 20120927
  Transmission Date: 20130627
  Serious: Yes (Hospitalization)
  Sender: FDA-Public Use
  Company Number: PHHY2012CA082463

PATIENT
  Sex: Male

DRUGS (6)
  1. SANDOSTATIN (OCTREOTIDE ACETATE) [Suspect]
     Indication: DIARRHOEA
     Route: 058
  2. SANDOSTATIN (OCTREOTIDE ACETATE) [Suspect]
     Indication: FLUSHING
  3. CANDESARTAN [Suspect]
     Dosage: 16 mg, UNK
  4. HYDROCHLOROTHIAZID [Concomitant]
  5. INDAPAMIDE [Concomitant]
  6. ALDACTONE [Concomitant]

REACTIONS (2)
  - Hypotension [Unknown]
  - Blood potassium decreased [Unknown]
